FAERS Safety Report 5596373-7 (Version None)
Quarter: 2008Q1

REPORT INFORMATION
  Report Type: 
  Country: None (occurrence: None)
  Receive Date: 20080118
  Receipt Date: 20071225
  Transmission Date: 20080703
  Serious: Yes (Hospitalization, Other)
  Sender: FDA-Public Use
  Company Number: JP-PFIZER INC-2007088015

PATIENT
  Sex: Female

DRUGS (7)
  1. MIGLITOL TABLET [Suspect]
     Indication: DIABETES MELLITUS
     Dosage: DAILY DOSE:150MG
     Route: 048
     Dates: start: 20070818, end: 20070917
  2. MIGLITOL TABLET [Suspect]
  3. DEPAS [Concomitant]
     Indication: INSOMNIA
     Dosage: DAILY DOSE:1MG
     Route: 048
  4. ALOSENN [Concomitant]
     Indication: CONSTIPATION
     Dosage: DAILY DOSE:.5MG
     Route: 048
  5. GLYSENNID [Concomitant]
     Indication: CONSTIPATION
     Dosage: DAILY DOSE:24MG
     Route: 048
  6. GASMOTIN [Concomitant]
  7. DAIKENTYUTO [Concomitant]
     Dates: start: 20071017

REACTIONS (2)
  - ABDOMINAL DISTENSION [None]
  - ILEUS [None]
